FAERS Safety Report 16050284 (Version 1)
Quarter: 2019Q1

REPORT INFORMATION
  Report Type: Spontaneous
  Country: SE (occurrence: SE)
  Receive Date: 20190308
  Receipt Date: 20190308
  Transmission Date: 20190418
  Serious: Yes (Hospitalization)
  Sender: FDA-Public Use
  Company Number: SE-TEVA-2019-SE-1020243

PATIENT
  Sex: Male

DRUGS (1)
  1. DIMOR [Suspect]
     Active Substance: LOPERAMIDE
     Dosage: ^TOOK 16 PCS FOR TWO DAYS ^
     Route: 048
     Dates: start: 20180620, end: 20180621

REACTIONS (2)
  - Palpitations [Unknown]
  - Intentional overdose [Unknown]

NARRATIVE: CASE EVENT DATE: 20180622
